FAERS Safety Report 6817558-5 (Version None)
Quarter: 2010Q3

REPORT INFORMATION
  Report Type: 
  Country: None (occurrence: None)
  Receive Date: 20100706
  Receipt Date: 20100701
  Transmission Date: 20110219
  Serious: Yes (Life-Threatening, Hospitalization)
  Sender: FDA-Public Use
  Company Number: JP-ASTRAZENECA-2010SE28816

PATIENT
  Age: 79 Year
  Sex: Male

DRUGS (13)
  1. ZOLADEX [Suspect]
     Indication: PROSTATE CANCER
     Route: 058
     Dates: start: 20020704, end: 20100325
  2. BLOPRESS [Concomitant]
     Route: 048
     Dates: start: 20090301
  3. HOKUNALIN:TAPE [Concomitant]
     Dosage: 2 SHEETS/DAY
     Route: 062
     Dates: start: 20090301
  4. TAKEPRON [Concomitant]
     Route: 048
     Dates: start: 20090301
  5. KAMAG G [Concomitant]
     Route: 048
     Dates: start: 20090301
  6. PROMAC [Concomitant]
     Route: 048
     Dates: start: 20090301
  7. PERSANTINE [Concomitant]
     Route: 065
     Dates: start: 20090301
  8. NITRODERM [Concomitant]
     Dosage: 1 SHEET/DAY
     Route: 062
     Dates: start: 20090301
  9. LASIX [Concomitant]
     Route: 065
     Dates: start: 20090301
  10. ALDACTONE [Concomitant]
     Route: 048
     Dates: start: 20090301
  11. ASPARA K [Concomitant]
     Route: 065
     Dates: start: 20090301
  12. ZYLORIC [Concomitant]
     Route: 048
     Dates: start: 20090301
  13. JUSO [Concomitant]
     Route: 065
     Dates: start: 20090301

REACTIONS (2)
  - GENERALISED ERYTHEMA [None]
  - STEVENS-JOHNSON SYNDROME [None]
